FAERS Safety Report 8734947 (Version 2)
Quarter: 2012Q4

REPORT INFORMATION
  Report Type: Report from Study
  Country: US (occurrence: US)
  Receive Date: 20120821
  Receipt Date: 20120918
  Transmission Date: 20130627
  Serious: Yes (Other)
  Sender: FDA-Public Use
  Company Number: US-TEVA-2011004320

PATIENT
  Age: 33 None
  Sex: Female
  Weight: 64.01 kg

DRUGS (2)
  1. PROVIGIL [Suspect]
     Indication: NARCOLEPSY
     Dosage: 200 Milligram Daily;
     Route: 048
     Dates: start: 1998
  2. PRENATAL VITAMINS [Concomitant]
     Dates: start: 20110511

REACTIONS (4)
  - Retained placenta or membranes [Recovered/Resolved with Sequelae]
  - Supraventricular extrasystoles [Unknown]
  - Live birth [Recovered/Resolved]
  - Placental infarction [Recovered/Resolved]
